FAERS Safety Report 21410422 (Version 1)
Quarter: 2022Q4

REPORT INFORMATION
  Report Type: Spontaneous
  Country: US (occurrence: None)
  Receive Date: 20221005
  Receipt Date: 20221005
  Transmission Date: 20230113
  Serious: Yes (Other)
  Sender: FDA-Public Use
  Company Number: US-ROCHE-3191680

PATIENT
  Age: 84 Year
  Sex: Female
  Weight: 65.376 kg

DRUGS (1)
  1. CELLCEPT [Suspect]
     Active Substance: MYCOPHENOLATE MOFETIL
     Indication: Autoimmune hepatitis
     Dosage: 500MG PER TABLET. 2 TABLETS IN THE MORNING (1000MG), 1 TABLET IN THE EVENING (500MG)
     Route: 048

REACTIONS (3)
  - Rectal haemorrhage [Unknown]
  - Off label use [Unknown]
  - Product dose omission issue [Unknown]

NARRATIVE: CASE EVENT DATE: 20220901
